FAERS Safety Report 7446055-1 (Version None)
Quarter: 2011Q2

REPORT INFORMATION
  Report Type: 
  Country: None (occurrence: None)
  Receive Date: 20110429
  Receipt Date: 20110426
  Transmission Date: 20111010
  Serious: Yes (Other)
  Sender: FDA-Public Use
  Company Number: US-PFIZER INC-2011059513

PATIENT
  Sex: Male
  Weight: 126.98 kg

DRUGS (1)
  1. ADVIL LIQUI-GELS [Suspect]
     Indication: HEADACHE
     Dosage: 200 MG, AS NEEDED
     Route: 048
     Dates: start: 20110312, end: 20110313

REACTIONS (4)
  - HYPOTENSION [None]
  - LIP SWELLING [None]
  - RASH [None]
  - URTICARIA [None]
